FAERS Safety Report 6674160-6 (Version None)
Quarter: 2010Q2

REPORT INFORMATION
  Report Type: 
  Country: None (occurrence: None)
  Receive Date: 20100407
  Receipt Date: 20100323
  Transmission Date: 20101027
  Serious: Yes (Life-Threatening)
  Sender: FDA-Public Use
  Company Number: 2010AP000594

PATIENT
  Age: 70 Year
  Sex: Female

DRUGS (1)
  1. RAMIPRIL [Suspect]
     Indication: ATRIAL FLUTTER
     Dosage: 5 MG; PO
     Route: 048
     Dates: start: 20100224, end: 20100228

REACTIONS (1)
  - SWOLLEN TONGUE [None]
